FAERS Safety Report 24193464 (Version 1)
Quarter: 2024Q3

REPORT INFORMATION
  Report Type: Spontaneous
  Country: SE (occurrence: SE)
  Receive Date: 20240809
  Receipt Date: 20240809
  Transmission Date: 20241017
  Serious: No
  Sender: ALKEM
  Company Number: SE-ALKEM LABORATORIES LIMITED-SE-ALKEM-2024-16235

PATIENT
  Age: 56 Year
  Sex: Male

DRUGS (3)
  1. DICLOFENAC [Suspect]
     Active Substance: DICLOFENAC
     Indication: Arthralgia
     Dosage: UNK (GEL)
     Route: 065
  2. DICLOFENAC [Suspect]
     Active Substance: DICLOFENAC
     Dosage: UNK (DICLOFENAC SODIUM SALT 1 PERCENT)
     Route: 065
  3. ETOFENAMATE [Suspect]
     Active Substance: ETOFENAMATE
     Indication: Product used for unknown indication
     Dosage: UNK
     Route: 065

REACTIONS (2)
  - Dermatitis contact [Unknown]
  - Cross sensitivity reaction [Unknown]
